FAERS Safety Report 11234792 (Version 1)
Quarter: 2015Q3

REPORT INFORMATION
  Report Type: Report from Study
  Country: FR (occurrence: FR)
  Receive Date: 20150702
  Receipt Date: 20150702
  Transmission Date: 20151125
  Serious: Yes (Hospitalization)
  Sender: FDA-Public Use
  Company Number: FR-GLAXOSMITHKLINE-FR2015GSK094442

PATIENT
  Age: 95 Year
  Sex: Male

DRUGS (9)
  1. PLAVIX [Concomitant]
     Active Substance: CLOPIDOGREL BISULFATE
     Dosage: UNK
     Dates: end: 201204
  2. TRIATEC [Concomitant]
     Active Substance: RAMIPRIL
  3. AMLOR [Concomitant]
     Active Substance: AMLODIPINE BESYLATE
  4. NOVOMIX [Concomitant]
     Active Substance: INSULIN ASPART
  5. TEMERIT [Concomitant]
     Active Substance: NEBIVOLOL
  6. KARDEGIC [Concomitant]
     Active Substance: ASPIRIN LYSINE
  7. TAHOR [Concomitant]
     Active Substance: ATORVASTATIN CALCIUM
  8. OMEGA-3-ACID ETHYL ESTERS. [Suspect]
     Active Substance: OMEGA-3-ACID ETHYL ESTERS
     Indication: ISCHAEMIC HEART DISEASE PROPHYLAXIS
     Dosage: UNK
     Dates: start: 20090702
  9. ISOPHANE INSULIN [Concomitant]
     Active Substance: INSULIN NOS

REACTIONS (3)
  - Arterial disorder [Unknown]
  - Sciatica [Unknown]
  - Back pain [Unknown]

NARRATIVE: CASE EVENT DATE: 20120405
